FAERS Safety Report 8211683-2 (Version None)
Quarter: 2012Q1

REPORT INFORMATION
  Report Type: 
  Country: None (occurrence: None)
  Receive Date: 20120228
  Receipt Date: 20110517
  Transmission Date: 20120608
  Serious: Yes (Other)
  Sender: FDA-Public Use
  Company Number: RB-27676-2011

PATIENT
  Sex: Female

DRUGS (2)
  1. SUBUTEX [Suspect]
     Indication: PRODUCT USED FOR UNKNOWN INDICATION
     Dosage: (DOSING INFORMATION UNKNOWN TRANSPLACENTAL)
     Route: 064
  2. PRENATAL VITAMINS (UNKNOWN) [Concomitant]

REACTIONS (3)
  - FOETAL EXPOSURE DURING PREGNANCY [None]
  - JAUNDICE [None]
  - DRUG WITHDRAWAL SYNDROME NEONATAL [None]
